FAERS Safety Report 5892986-3 (Version None)
Quarter: 2008Q3

REPORT INFORMATION
  Report Type: 
  Country: None (occurrence: None)
  Receive Date: 20080919
  Receipt Date: 20080905
  Transmission Date: 20090109
  Serious: Yes (Hospitalization)
  Sender: FDA-Public Use
  Company Number: POMP-1000303

PATIENT
  Sex: Female
  Weight: 25 kg

DRUGS (1)
  1. MYOZYME [Suspect]
     Indication: GLYCOGEN STORAGE DISEASE TYPE II
     Dosage: 20 MG/KG, Q2W, INTRAVENOUS; 40 MG/KG, Q2W, INTRAVENOUS
     Route: 042
     Dates: start: 20040623

REACTIONS (1)
  - SCOLIOSIS SURGERY [None]
